FAERS Safety Report 5020841-X (Version None)
Quarter: 2006Q2

REPORT INFORMATION
  Report Type: 
  Country: None (occurrence: None)
  Receive Date: 20060608
  Receipt Date: 20060522
  Transmission Date: 20061013
  Serious: Yes (Hospitalization)
  Sender: FDA-Public Use
  Company Number: ES-ABBOTT-06P-144-0334617-00

PATIENT
  Age: 68 Year
  Sex: Female
  Weight: 65.5 kg

DRUGS (6)
  1. ZEMPLAR [Suspect]
     Indication: HYPERPARATHYROIDISM SECONDARY
     Route: 042
     Dates: start: 20051213, end: 20060419
  2. DIHYDROERGOCRISTINE MESILATE [Concomitant]
     Indication: DIZZINESS
     Route: 048
     Dates: start: 19980210
  3. FOLIC ACID [Concomitant]
     Indication: RENAL FAILURE
     Route: 048
     Dates: start: 20050930
  4. NEUROGRISEVIT [Concomitant]
     Indication: RENAL FAILURE
     Route: 048
     Dates: start: 20051004
  5. ASPIRIN [Concomitant]
     Indication: RENAL FAILURE
     Route: 048
     Dates: start: 20051004
  6. NASTICAL [Concomitant]
     Indication: RENAL FAILURE
     Route: 048
     Dates: start: 20051004

REACTIONS (4)
  - DYSPEPSIA [None]
  - GASTROENTERITIS [None]
  - PERISTALSIS VISIBLE [None]
  - PYREXIA [None]
